FAERS Safety Report 24801084 (Version 1)
Quarter: 2025Q1

REPORT INFORMATION
  Report Type: Spontaneous
  Country: FR (occurrence: FR)
  Receive Date: 20250102
  Receipt Date: 20250102
  Transmission Date: 20250409
  Serious: Yes (Other)
  Sender: PFIZER
  Company Number: None

PATIENT
  Age: 11 Year
  Sex: Female

DRUGS (4)
  1. IRINOTECAN HYDROCHLORIDE [Suspect]
     Active Substance: IRINOTECAN HYDROCHLORIDE
     Indication: Rhabdomyolysis
     Route: 042
     Dates: start: 20241205
  2. VINCRISTINE SULFATE [Suspect]
     Active Substance: VINCRISTINE SULFATE
     Indication: Rhabdomyolysis
     Route: 042
     Dates: start: 20241205
  3. TEMOZOLOMIDE [Suspect]
     Active Substance: TEMOZOLOMIDE
     Indication: Rhabdomyolysis
     Dosage: 135 MG, 1X/DAY
     Route: 048
     Dates: start: 20241206
  4. CEFIXIME [Suspect]
     Active Substance: CEFIXIME
     Indication: Opportunistic infection prophylaxis
     Route: 048
     Dates: start: 20241204

REACTIONS (1)
  - Rash maculo-papular [Not Recovered/Not Resolved]

NARRATIVE: CASE EVENT DATE: 20241208
